FAERS Safety Report 23609282 (Version 1)
Quarter: 2024Q1

REPORT INFORMATION
  Report Type: Spontaneous
  Country: CN (occurrence: CN)
  Receive Date: 20240308
  Receipt Date: 20240308
  Transmission Date: 20240410
  Serious: Yes (Hospitalization)
  Sender: FDA-Public Use
  Company Number: CN-002147023-NVSC2024CN049627

PATIENT
  Age: 35 Year
  Sex: Male
  Weight: 83 kg

DRUGS (5)
  1. CARBAMAZEPINE [Suspect]
     Active Substance: CARBAMAZEPINE
     Indication: Muscle spasms
     Dosage: 0.2 G, TID
     Route: 041
     Dates: start: 20240112, end: 20240116
  2. ACETAMINOPHEN\ASPIRIN\CAFFEINE [Suspect]
     Active Substance: ACETAMINOPHEN\ASPIRIN\CAFFEINE
     Indication: Pain
     Dosage: 1 DOSAGE FORM, QD
     Route: 048
     Dates: start: 20240112, end: 20240112
  3. ACETAMINOPHEN\ASPIRIN\CAFFEINE [Suspect]
     Active Substance: ACETAMINOPHEN\ASPIRIN\CAFFEINE
     Indication: Pyrexia
  4. EPERISONE [Suspect]
     Active Substance: EPERISONE
     Indication: Muscle relaxant therapy
     Dosage: 50 MG, TID
     Route: 048
     Dates: start: 20240112, end: 20240116
  5. EPERISONE [Suspect]
     Active Substance: EPERISONE
     Indication: Muscle spasms

REACTIONS (1)
  - Hepatic enzyme increased [Not Recovered/Not Resolved]

NARRATIVE: CASE EVENT DATE: 20240116
